FAERS Safety Report 7530951-0 (Version None)
Quarter: 2011Q2

REPORT INFORMATION
  Report Type: 
  Country: None (occurrence: None)
  Receive Date: 20110531
  Receipt Date: 20110517
  Transmission Date: 20111010
  Serious: Yes (Other)
  Sender: FDA-Public Use
  Company Number: FK201101063

PATIENT
  Age: 18 Year
  Sex: Female

DRUGS (2)
  1. ETOPOSIDE [Suspect]
     Indication: OVARIAN CANCER
     Dosage: 120 MG/M2
  2. CISPLATIN [Suspect]
     Indication: OVARIAN CANCER
     Dosage: 100 MG/M2

REACTIONS (1)
  - TERATOMA [None]
